FAERS Safety Report 9063063 (Version 1)
Quarter: 2013Q1

REPORT INFORMATION
  Report Type: Report from Study
  Country: US (occurrence: US)
  Receive Date: 20130131
  Receipt Date: 20130131
  Transmission Date: 20140127
  Serious: No
  Sender: FDA-Public Use
  Company Number: US-ABBOTT-12P-163-1006721-00

PATIENT
  Age: 69 Year
  Sex: Male

DRUGS (17)
  1. HUMIRA [Suspect]
     Indication: CROHN^S DISEASE
     Dosage: LOADING DOSE
     Dates: start: 20121106
  2. NITRO [Concomitant]
     Indication: CHEST PAIN
  3. PANTOPRAZOLE [Concomitant]
     Indication: BARRETT^S OESOPHAGUS
  4. ONDANSETRON [Concomitant]
     Indication: NAUSEA
  5. IRON [Concomitant]
     Indication: ANAEMIA
  6. ISOSORBIDE MONONITRATE [Concomitant]
     Indication: ATRIAL FIBRILLATION
  7. DIGOXIN [Concomitant]
     Indication: ATRIAL FIBRILLATION
  8. FUROSEMIDE [Concomitant]
     Indication: OEDEMA PERIPHERAL
     Dosage: EVERY OTHER DAY
  9. ATENOLOL [Concomitant]
     Indication: CARDIAC DISORDER
  10. POTASSIUM CHLORIDE MAG [Concomitant]
     Indication: MINERAL SUPPLEMENTATION
  11. MIRTAZAPINE [Concomitant]
     Indication: APPETITE DISORDER
  12. MIRTAZAPINE [Concomitant]
     Indication: ANXIETY
  13. VITAMIN D [Concomitant]
     Indication: PRODUCT USED FOR UNKNOWN INDICATION
  14. BAYER ASPIRIN [Concomitant]
     Indication: PRODUCT USED FOR UNKNOWN INDICATION
  15. CALCIUM [Concomitant]
     Indication: PRODUCT USED FOR UNKNOWN INDICATION
  16. MULTIVITAMIN [Concomitant]
     Indication: PRODUCT USED FOR UNKNOWN INDICATION
     Dosage: DAILY
  17. WARFARIN [Concomitant]
     Indication: PRODUCT USED FOR UNKNOWN INDICATION

REACTIONS (1)
  - Fatigue [Recovered/Resolved]
